FAERS Safety Report 21074263 (Version 1)
Quarter: 2022Q3

REPORT INFORMATION
  Report Type: Spontaneous
  Country: US (occurrence: US)
  Receive Date: 20220713
  Receipt Date: 20220713
  Transmission Date: 20221026
  Serious: Yes (Other)
  Sender: FDA-Public Use
  Company Number: US-SA-SAC20220707001457

PATIENT
  Age: 68 Year
  Sex: Female

DRUGS (1)
  1. MULTAQ [Suspect]
     Active Substance: DRONEDARONE
     Indication: Arrhythmia
     Dosage: UNK

REACTIONS (4)
  - Syncope [Unknown]
  - Dizziness [Unknown]
  - Piloerection [Unknown]
  - Discomfort [Unknown]
